FAERS Safety Report 9684377 (Version 2)
Quarter: 2013Q4

REPORT INFORMATION
  Report Type: Report from Study
  Country: CA (occurrence: CA)
  Receive Date: 20131112
  Receipt Date: 20131112
  Transmission Date: 20140711
  Serious: Yes (Other)
  Sender: FDA-Public Use
  Company Number: CA-ABBVIE-11P-028-0887635-00

PATIENT
  Age: 40 Year
  Sex: Female
  Weight: 77.18 kg

DRUGS (5)
  1. HUMIRA 40 MG/0.8 ML PEN [Suspect]
     Indication: RHEUMATOID ARTHRITIS
     Route: 058
     Dates: start: 20110426, end: 20111011
  2. HUMIRA 40 MG/0.8 ML PEN [Suspect]
  3. ZOLOFT [Concomitant]
     Indication: DEPRESSION
     Route: 048
     Dates: start: 201112
  4. SULFASALAZINE [Concomitant]
     Indication: RHEUMATOID ARTHRITIS
     Route: 048
     Dates: start: 2007
  5. LEUKOVORIN [Concomitant]
     Indication: PRODUCT USED FOR UNKNOWN INDICATION

REACTIONS (4)
  - Basal cell carcinoma [Recovered/Resolved]
  - Rheumatoid arthritis [Unknown]
  - Melanocytic naevus [Recovered/Resolved]
  - Basal cell carcinoma [Recovered/Resolved]
